FAERS Safety Report 25191920 (Version 1)
Quarter: 2025Q2

REPORT INFORMATION
  Report Type: Spontaneous
  Country: AR (occurrence: AR)
  Receive Date: 20250414
  Receipt Date: 20250414
  Transmission Date: 20250716
  Serious: Yes (Hospitalization)
  Sender: AMGEN
  Company Number: AR-AMGEN-ARGSP2025066710

PATIENT
  Age: 23 Year
  Sex: Male

DRUGS (3)
  1. NPLATE [Suspect]
     Active Substance: ROMIPLOSTIM
     Indication: Immune thrombocytopenia
     Dosage: 3 MICROGRAM/KILOGRAM, QWK (PER WEEK)
     Route: 065
     Dates: start: 202103
  2. ELTROMBOPAG [Concomitant]
     Active Substance: ELTROMBOPAG
  3. Immunoglobulin [Concomitant]

REACTIONS (3)
  - Mucocutaneous haemorrhage [Unknown]
  - Platelet count decreased [Unknown]
  - Off label use [Unknown]

NARRATIVE: CASE EVENT DATE: 20210301
